FAERS Safety Report 16789821 (Version 1)
Quarter: 2019Q3

REPORT INFORMATION
  Report Type: Spontaneous
  Country: US (occurrence: US)
  Receive Date: 20190910
  Receipt Date: 20190910
  Transmission Date: 20191005
  Serious: No
  Sender: FDA-Public Use
  Company Number: US-AMGEN-USASP2019141995

PATIENT
  Age: 58 Year
  Sex: Female

DRUGS (3)
  1. HEPATITIS B VACCIN [Concomitant]
     Active Substance: HEPATITIS B VIRUS VACCINE
     Dosage: UNK
     Dates: start: 20190608
  2. REPATHA [Suspect]
     Active Substance: EVOLOCUMAB
     Indication: BLOOD CHOLESTEROL ABNORMAL
     Dosage: 140 MILLIGRAM, Q2WK
     Route: 065
     Dates: start: 201811
  3. HEPATITIS A [Concomitant]
     Dosage: UNK
     Dates: start: 20190608

REACTIONS (2)
  - Ageusia [Unknown]
  - Stomatitis [Unknown]

NARRATIVE: CASE EVENT DATE: 201906
